FAERS Safety Report 14298702 (Version 2)
Quarter: 2018Q1

REPORT INFORMATION
  Report Type: Spontaneous
  Country: US (occurrence: US)
  Receive Date: 20171218
  Receipt Date: 20180105
  Transmission Date: 20180509
  Serious: Yes (Life-Threatening, Hospitalization, Other)
  Sender: FDA-Public Use
  Company Number: US-BIOMARINAP-US-2017-116357

PATIENT
  Age: 4 Year
  Sex: Male
  Weight: 30 kg

DRUGS (3)
  1. KEPPRA [Concomitant]
     Active Substance: LEVETIRACETAM
     Indication: SEIZURE
     Dosage: 300 MG, BID
  2. VALPROATE [Concomitant]
     Active Substance: VALPROIC ACID
     Indication: SEIZURE
     Dosage: 250 MG, TID
  3. BRINEURA [Suspect]
     Active Substance: CERLIPONASE ALFA
     Indication: NEURONAL CEROID LIPOFUSCINOSIS
     Dosage: 300 MG, QOW
     Route: 037

REACTIONS (10)
  - CNS ventriculitis [Recovered/Resolved with Sequelae]
  - Catheter site erythema [Unknown]
  - Myoclonus [Recovered/Resolved with Sequelae]
  - Dysphagia [Unknown]
  - Meningitis staphylococcal [Recovered/Resolved with Sequelae]
  - Seizure [Recovered/Resolved with Sequelae]
  - Nuchal rigidity [Recovered/Resolved with Sequelae]
  - Irritability [Recovered/Resolved with Sequelae]
  - Posture abnormal [Recovered/Resolved with Sequelae]
  - Pyrexia [Unknown]

NARRATIVE: CASE EVENT DATE: 20171206
